FAERS Safety Report 15888785 (Version 1)
Quarter: 2019Q1

REPORT INFORMATION
  Report Type: Spontaneous
  Country: US (occurrence: US)
  Receive Date: 20190130
  Receipt Date: 20190130
  Transmission Date: 20190417
  Serious: No
  Sender: FDA-Public Use
  Company Number: US-JIANGSU HENGRUI MEDICINE CO., LTD.-2061916

PATIENT
  Age: 73 Year
  Sex: Female

DRUGS (6)
  1. HYDROXYDAUNOMYCIN [Concomitant]
  2. CYCLOPHOSPHAMIDE FOR INJECTION USP, 500 MG, 1 G AND 2 G PER SINGLE-DOS [Suspect]
     Active Substance: CYCLOPHOSPHAMIDE
  3. PREDNISOLONE. [Concomitant]
     Active Substance: PREDNISOLONE
  4. BENDAMUSTINE HYDROCHLORIDE. [Concomitant]
     Active Substance: BENDAMUSTINE HYDROCHLORIDE
  5. ONCOVIN [Concomitant]
     Active Substance: VINCRISTINE SULFATE
  6. RITUXIMAB. [Concomitant]
     Active Substance: RITUXIMAB

REACTIONS (4)
  - Diffuse large B-cell lymphoma recurrent [None]
  - Discomfort [None]
  - Disease progression [None]
  - Visual impairment [None]
